FAERS Safety Report 14301521 (Version 1)
Quarter: 2017Q4

REPORT INFORMATION
  Report Type: Report from Study
  Country: US (occurrence: US)
  Receive Date: 20171219
  Receipt Date: 20171219
  Transmission Date: 20180321
  Serious: Yes (Death, Hospitalization)
  Sender: FDA-Public Use
  Company Number: US-BAYER-2017-100713

PATIENT
  Age: 76 Year
  Sex: Male

DRUGS (1)
  1. NEXAVAR [Suspect]
     Active Substance: SORAFENIB
     Indication: HEPATOCELLULAR CARCINOMA
     Dosage: 400 MG, BID
     Route: 048
     Dates: start: 20170517, end: 201706

REACTIONS (19)
  - Meningitis bacterial [Fatal]
  - Acute respiratory failure [Fatal]
  - Pruritus [None]
  - Encephalopathy [None]
  - Dyslipidaemia [None]
  - Weight decreased [None]
  - Benign prostatic hyperplasia [None]
  - Hypertension [None]
  - Normocytic anaemia [None]
  - Inappropriate antidiuretic hormone secretion [None]
  - Dry skin [None]
  - Lethargy [None]
  - Vitamin D deficiency [None]
  - Gastrooesophageal reflux disease [None]
  - Left ventricular failure [None]
  - Septic shock [None]
  - Mental disorder [None]
  - Hyponatraemia [None]
  - Thrombocytopenia [None]

NARRATIVE: CASE EVENT DATE: 2017
